FAERS Safety Report 24175440 (Version 1)
Quarter: 2024Q3

REPORT INFORMATION
  Report Type: Spontaneous
  Country: US (occurrence: US)
  Receive Date: 20240805
  Receipt Date: 20240805
  Transmission Date: 20241017
  Serious: No
  Sender: SETON
  Company Number: US-SETONPHARMA-2024SETSPO00004

PATIENT
  Age: 70 Year

DRUGS (1)
  1. PENTAMIDINE ISETHIONATE [Suspect]
     Active Substance: PENTAMIDINE ISETHIONATE
     Indication: Opportunistic infection prophylaxis
     Route: 042

REACTIONS (4)
  - Hypoaesthesia oral [Unknown]
  - Paraesthesia oral [Unknown]
  - Injection site pruritus [Unknown]
  - Product use in unapproved indication [Unknown]

NARRATIVE: CASE EVENT DATE: 20240621
